FAERS Safety Report 18643489 (Version 2)
Quarter: 2021Q1

REPORT INFORMATION
  Report Type: Report from Study
  Country: US (occurrence: US)
  Receive Date: 20201221
  Receipt Date: 20210104
  Transmission Date: 20210419
  Serious: Yes (Hospitalization)
  Sender: FDA-Public Use
  Company Number: US-EISAI MEDICAL RESEARCH-EC-2020-085465

PATIENT
  Age: 57 Year
  Sex: Female

DRUGS (3)
  1. LENVIMA [Suspect]
     Active Substance: LENVATINIB
     Indication: ENDOMETRIAL CANCER
     Route: 048
     Dates: start: 20200916, end: 20201009
  2. LENVIMA [Suspect]
     Active Substance: LENVATINIB
     Route: 048
     Dates: start: 20201010, end: 20201213
  3. KEYTRUDA [Concomitant]
     Active Substance: PEMBROLIZUMAB

REACTIONS (5)
  - Rectal haemorrhage [Unknown]
  - Haemoglobin decreased [Unknown]
  - Malignant neoplasm progression [Unknown]
  - Vaginal haemorrhage [Recovered/Resolved]
  - Infected neoplasm [Unknown]

NARRATIVE: CASE EVENT DATE: 2020
